FAERS Safety Report 8195411-5 (Version None)
Quarter: 2012Q1

REPORT INFORMATION
  Report Type: 
  Country: None (occurrence: None)
  Receive Date: 20120308
  Receipt Date: 20120302
  Transmission Date: 20120608
  Serious: Yes (Other)
  Sender: FDA-Public Use
  Company Number: PHHY2012FR013790

PATIENT
  Sex: Female
  Weight: 71 kg

DRUGS (6)
  1. ZOMETA [Suspect]
     Indication: METASTASES TO BONE
     Dosage: 4 MG, QMO
     Dates: start: 20100510
  2. FASLODEX [Suspect]
     Dosage: 250 MG, TWICE MONTHLY
     Route: 030
     Dates: start: 20100527
  3. ZOMETA [Suspect]
     Dosage: 4 MG, Q2MO
     Dates: start: 20110201
  4. ZOMETA [Suspect]
     Dosage: 4 MG, Q2MO
     Dates: start: 20110601
  5. DEPAKENE [Concomitant]
     Dosage: 1 DF, BID
     Route: 048
  6. LYRICA [Concomitant]
     Indication: NEURALGIA

REACTIONS (5)
  - WEIGHT INCREASED [None]
  - OSTEONECROSIS OF JAW [None]
  - NASOPHARYNGITIS [None]
  - TOOTH ABSCESS [None]
  - FATIGUE [None]
